FAERS Safety Report 9731892 (Version 1)
Quarter: 2013Q4

REPORT INFORMATION
  Report Type: Report from Study
  Country: CA (occurrence: CA)
  Receive Date: 20131204
  Receipt Date: 20131204
  Transmission Date: 20140711
  Serious: Yes (Other)
  Sender: FDA-Public Use
  Company Number: PHHY2013CA139523

PATIENT
  Sex: Male

DRUGS (1)
  1. GLEEVEC [Suspect]
     Indication: CHRONIC MYELOID LEUKAEMIA
     Dosage: UNK UKN, UNK
     Route: 048
     Dates: start: 2002, end: 20131010

REACTIONS (6)
  - Neoplasm [Unknown]
  - Red blood cell count increased [Unknown]
  - Nasal obstruction [Unknown]
  - Haemoglobin decreased [Unknown]
  - Ear congestion [Unknown]
  - Epistaxis [Unknown]
